FAERS Safety Report 10775815 (Version 1)
Quarter: 2015Q1

REPORT INFORMATION
  Report Type: Spontaneous
  Country: RU (occurrence: None)
  Receive Date: 20150205
  Receipt Date: 20150205
  Transmission Date: 20150721
  Serious: Yes (Hospitalization)
  Sender: FDA-Public Use
  Company Number: 8007455D

PATIENT
  Sex: Female

DRUGS (6)
  1. CALCIFEROL (ERGOCALCIFEROL) [Concomitant]
  2. FLUDROCORTISONE ACETATE. [Concomitant]
     Active Substance: FLUDROCORTISONE ACETATE
  3. CORTEF (HYDROCORTISONE) [Concomitant]
  4. LEVOTHYROXINE (LEVOTHYROXINE) (LEVOTHYROXINE SODIUM) [Suspect]
     Active Substance: LEVOTHYROXINE
     Indication: HYPOTHYROIDISM
  5. PREDNISOLONE. [Concomitant]
     Active Substance: PREDNISOLONE
  6. CORTISONE [Concomitant]
     Active Substance: CORTISONE\HYDROCORTISONE

REACTIONS (5)
  - Normal newborn [None]
  - Caesarean section [None]
  - Tetany [None]
  - Breast feeding [None]
  - Maternal exposure during pregnancy [None]
